FAERS Safety Report 9456120 (Version 1)
Quarter: 2013Q3

REPORT INFORMATION
  Report Type: Spontaneous
  Country: FR (occurrence: None)
  Receive Date: 20130808
  Receipt Date: 20130808
  Transmission Date: 20140515
  Serious: Yes (Other)
  Sender: FDA-Public Use
  Company Number: 1824972

PATIENT
  Age: 65 Year
  Sex: Female

DRUGS (2)
  1. PACLITAXEL [Suspect]
     Dosage: (NOT OTHERWISE SPECIFIED)
     Route: 042
     Dates: start: 20130603, end: 20130603
  2. CARBOPLATIN [Suspect]
     Dosage: (NOT OTHERWISE SPECIFIED)
     Route: 042
     Dates: start: 20130603, end: 20130603

REACTIONS (5)
  - Hypertension [None]
  - Erythema [None]
  - Nausea [None]
  - Dyspnoea [None]
  - Hypersensitivity [None]
